FAERS Safety Report 6997731-6 (Version None)
Quarter: 2010Q3

REPORT INFORMATION
  Report Type: 
  Country: None (occurrence: None)
  Receive Date: 20100918
  Receipt Date: 20091125
  Transmission Date: 20110219
  Serious: No
  Sender: FDA-Public Use
  Company Number: US-WYE-H12422109

PATIENT
  Sex: Female

DRUGS (2)
  1. PRISTIQ [Suspect]
     Dosage: UNKNOWN
     Dates: start: 20090101, end: 20091001
  2. PRISTIQ [Suspect]
     Dosage: UNKNOWN
     Dates: start: 20091101

REACTIONS (4)
  - ANXIETY [None]
  - FATIGUE [None]
  - NERVOUSNESS [None]
  - NIGHT SWEATS [None]
